FAERS Safety Report 6268207-9 (Version None)
Quarter: 2009Q3

REPORT INFORMATION
  Report Type: 
  Country: None (occurrence: None)
  Receive Date: 20090714
  Receipt Date: 20090714
  Transmission Date: 20100115
  Serious: Yes (Other)
  Sender: FDA-Public Use
  Company Number: None

PATIENT
  Age: 19 Year
  Sex: Female
  Weight: 77.1115 kg

DRUGS (2)
  1. METOCLOPRAMIDE HCL [Suspect]
     Indication: CHOLELITHIASIS
     Dosage: ONE PILL AT MEALS AND NIGHT PO
     Route: 048
     Dates: start: 20090708, end: 20090713
  2. METOCLOPRAMIDE HCL [Suspect]
     Indication: CONSTIPATION
     Dosage: ONE PILL AT MEALS AND NIGHT PO
     Route: 048
     Dates: start: 20090708, end: 20090713

REACTIONS (3)
  - DYSKINESIA [None]
  - ILLUSION [None]
  - MALAISE [None]
